FAERS Safety Report 10363599 (Version 1)
Quarter: 2014Q3

REPORT INFORMATION
  Report Type: Not Available
  Country: GB (occurrence: GB)
  Receive Date: 20140805
  Receipt Date: 20140805
  Transmission Date: 20150326
  Serious: Yes (Hospitalization)
  Sender: FDA-Public Use
  Company Number: GB-MUNDIPHARMA DS AND PHARMACOVIGILANCE-GBR-2014-0019763

PATIENT
  Sex: Female

DRUGS (13)
  1. GABAPENTIN. [Suspect]
     Active Substance: GABAPENTIN
     Indication: NEURALGIA
     Dosage: 300 MG, TID
     Route: 048
  2. SENNA [Concomitant]
     Active Substance: SENNA LEAF\SENNOSIDES\SENNOSIDES A AND B
  3. LERCANIDIPINE [Concomitant]
     Active Substance: LERCANIDIPINE
  4. PARACETAMOL [Concomitant]
     Active Substance: ACETAMINOPHEN
  5. OMEPRAZOLE. [Concomitant]
     Active Substance: OMEPRAZOLE
  6. QUININE [Concomitant]
     Active Substance: QUININE
  7. MORPHINE SULFATE. [Suspect]
     Active Substance: MORPHINE SULFATE
     Indication: ANALGESIC THERAPY
     Dosage: 20 MG, BID
     Route: 048
  8. GABAPENTIN. [Suspect]
     Active Substance: GABAPENTIN
     Dosage: 300 MG, BID
     Route: 048
  9. DOCUSATE [Concomitant]
     Active Substance: DOCUSATE
  10. MEGESTROL ACETATE. [Concomitant]
     Active Substance: MEGESTROL ACETATE
  11. MORPHINE SULFATE. [Suspect]
     Active Substance: MORPHINE SULFATE
     Dosage: 10 MG, BID
     Route: 048
  12. CYCLIZINE [Concomitant]
     Active Substance: CYCLIZINE
  13. MACROGOL [Concomitant]
     Active Substance: POLYETHYLENE GLYCOLS

REACTIONS (3)
  - Somnolence [Recovering/Resolving]
  - Fall [Unknown]
  - Confusional state [Recovering/Resolving]

NARRATIVE: CASE EVENT DATE: 20140706
